FAERS Safety Report 10206684 (Version 1)
Quarter: 2014Q2

REPORT INFORMATION
  Report Type: Spontaneous
  Country: US (occurrence: None)
  Receive Date: 20140528
  Receipt Date: 20140528
  Transmission Date: 20141212
  Serious: No
  Sender: FDA-Public Use
  Company Number: None

PATIENT
  Age: 3 Year
  Sex: Male

DRUGS (1)
  1. POLYETHYLENE GLYCOL 3350 [Suspect]
     Indication: CONSTIPATION
     Route: 048
     Dates: start: 20091001, end: 20140525

REACTIONS (5)
  - Dysphemia [None]
  - Sensory disturbance [None]
  - Anxiety [None]
  - Tic [None]
  - Nervous system disorder [None]
